FAERS Safety Report 20014296 (Version 1)
Quarter: 2021Q4

REPORT INFORMATION
  Report Type: Spontaneous
  Country: US (occurrence: US)
  Receive Date: 20211029
  Receipt Date: 20211029
  Transmission Date: 20220303
  Serious: Yes (Death)
  Sender: FDA-Public Use
  Company Number: US-FRESENIUS KABI-FK202111726

PATIENT
  Age: 51 Year
  Sex: Female
  Weight: 68.6 kg

DRUGS (2)
  1. VANCOMYCIN HYDROCHLORIDE [Suspect]
     Active Substance: VANCOMYCIN HYDROCHLORIDE
     Indication: Device related infection
     Dosage: INFUSION RATE WAS `VERY SLOW`
     Route: 042
     Dates: start: 20211020, end: 20211020
  2. ASCORBIC ACID/CHOLESTEROL/RETINOL/ARGININE/IRON/POTASSIUM/SODIUM/CALCI [Concomitant]
     Indication: Supplementation therapy
     Dosage: UNKNOWN
     Route: 048
     Dates: start: 20211020, end: 20211020

REACTIONS (7)
  - Anxiety [Fatal]
  - Malaise [Fatal]
  - Vomiting [Fatal]
  - Seizure like phenomena [Fatal]
  - Unresponsive to stimuli [Fatal]
  - Respiratory arrest [Fatal]
  - Incorrect drug administration rate [Fatal]

NARRATIVE: CASE EVENT DATE: 20211020
